FAERS Safety Report 8384896-7 (Version None)
Quarter: 2012Q2

REPORT INFORMATION
  Report Type: 
  Country: None (occurrence: None)
  Receive Date: 20120524
  Receipt Date: 20120518
  Transmission Date: 20120825
  Serious: No
  Sender: FDA-Public Use
  Company Number: US-PFIZER INC-2012084529

PATIENT
  Sex: Female

DRUGS (11)
  1. PREMARIN [Suspect]
     Indication: ATROPHIC VULVOVAGINITIS
     Dosage: 0.5 G, 3 TIMES A WEEK
     Route: 067
     Dates: start: 20100908
  2. COZAAR [Concomitant]
     Dosage: 25 MG, 1X/DAY
     Route: 048
     Dates: start: 20120126
  3. VITAMIN D [Concomitant]
     Dosage: UNK
     Route: 048
  4. XANAX [Concomitant]
     Dosage: 0.25 MG, 3X/DAY, AS NEEDED
     Route: 048
     Dates: start: 20120111
  5. JANUVIA [Concomitant]
     Dosage: 100 MG, 1X/DAY
     Route: 048
     Dates: start: 20111123
  6. WARFARIN [Concomitant]
     Dosage: 2.5 MG, 1X/DAY
     Route: 048
     Dates: start: 20110104
  7. XANAX [Concomitant]
     Indication: ANXIETY
     Dosage: 0.5 MG, 3X/DAY
     Route: 048
     Dates: start: 20120126
  8. LASIX [Concomitant]
     Dosage: 40 MG, 1X/DAY
     Route: 048
     Dates: start: 20111115
  9. TOPROL-XL [Concomitant]
     Dosage: 25 MG/24H, 1X/DAY
     Route: 048
     Dates: start: 20111011
  10. BETADINE [Suspect]
     Dosage: 10 %, AS NEEDED
     Route: 061
     Dates: start: 20120207
  11. LIPITOR [Concomitant]
     Dosage: 10 MG, 1X/DAY
     Route: 048
     Dates: start: 20110121

REACTIONS (4)
  - PYREXIA [None]
  - NERVOUSNESS [None]
  - CIRCUMSTANCE OR INFORMATION CAPABLE OF LEADING TO MEDICATION ERROR [None]
  - CHILLS [None]
